FAERS Safety Report 6907494-8 (Version None)
Quarter: 2010Q3

REPORT INFORMATION
  Report Type: 
  Country: None (occurrence: None)
  Receive Date: 20100805
  Receipt Date: 20100726
  Transmission Date: 20110219
  Serious: No
  Sender: FDA-Public Use
  Company Number: US-BIOGENIDEC-2010BI024482

PATIENT
  Sex: Male

DRUGS (2)
  1. TYSABRI [Suspect]
     Indication: MULTIPLE SCLEROSIS
     Route: 042
     Dates: start: 20071227, end: 20080401
  2. TYSABRI [Suspect]
     Route: 042
     Dates: start: 20081215

REACTIONS (2)
  - CYSTITIS [None]
  - URINARY TRACT INFECTION [None]
